FAERS Safety Report 6154983-2 (Version None)
Quarter: 2009Q2

REPORT INFORMATION
  Report Type: 
  Country: None (occurrence: None)
  Receive Date: 20090410
  Receipt Date: 20090331
  Transmission Date: 20091009
  Serious: Yes (Hospitalization, Other)
  Sender: FDA-Public Use
  Company Number: 236716

PATIENT
  Age: 53 Year
  Sex: Female

DRUGS (3)
  1. VINORELBINE [Suspect]
     Indication: METASTASIS
  2. CORTICOSTEROIDS [Suspect]
     Indication: DRUG USE FOR UNKNOWN INDICATION
  3. 5-FLUOROURACIL /00098801/ [Concomitant]

REACTIONS (2)
  - CONSTIPATION [None]
  - PNEUMATOSIS INTESTINALIS [None]
